FAERS Safety Report 6735283-6 (Version None)
Quarter: 2010Q2

REPORT INFORMATION
  Report Type: 
  Country: None (occurrence: None)
  Receive Date: 20100514
  Receipt Date: 20090324
  Transmission Date: 20101027
  Serious: Yes (Hospitalization)
  Sender: FDA-Public Use
  Company Number: WAES 0904USA00303

PATIENT
  Age: 40 Year
  Sex: Female

DRUGS (4)
  1. HYDRODIURIL [Suspect]
  2. DEPAKOTE [Suspect]
     Indication: BIPOLAR DISORDER
  3. CITALOPRAM HYDROBROMIDE [Suspect]
  4. ZITHROMAX [Suspect]

REACTIONS (1)
  - HYPONATRAEMIA [None]
